FAERS Safety Report 13060354 (Version 21)
Quarter: 2018Q2

REPORT INFORMATION
  Report Type: Report from Study
  Country: SK (occurrence: SK)
  Receive Date: 20161223
  Receipt Date: 20180512
  Transmission Date: 20180711
  Serious: Yes (Hospitalization)
  Sender: FDA-Public Use
  Company Number: SK-SA-2016SA205066

PATIENT
  Age: 39 Year
  Sex: Female
  Weight: 50 kg

DRUGS (1)
  1. LEMTRADA [Suspect]
     Active Substance: ALEMTUZUMAB
     Indication: MULTIPLE SCLEROSIS RELAPSE
     Route: 041
     Dates: start: 20161024, end: 20161028

REACTIONS (18)
  - Vulvovaginitis [Recovered/Resolved]
  - Uveitis [Recovered/Resolved]
  - Diarrhoea [Recovered/Resolved]
  - Menstruation irregular [Recovering/Resolving]
  - Viral infection [Recovered/Resolved]
  - Leukopenia [Recovered/Resolved]
  - Dysarthria [Recovered/Resolved]
  - Cystitis [Recovered/Resolved]
  - Normocytic anaemia [Not Recovered/Not Resolved]
  - Rash [Recovered/Resolved]
  - Leukopenia [Not Recovered/Not Resolved]
  - Onychomycosis [Not Recovered/Not Resolved]
  - Paraesthesia [Recovered/Resolved]
  - Viral infection [Recovered/Resolved]
  - Pyrexia [Recovered/Resolved]
  - Fungal skin infection [Not Recovered/Not Resolved]
  - Iridocyclitis [Not Recovered/Not Resolved]
  - Uveitis [Recovered/Resolved]

NARRATIVE: CASE EVENT DATE: 20161024
